FAERS Safety Report 7374264-9 (Version None)
Quarter: 2011Q1

REPORT INFORMATION
  Report Type: 
  Country: None (occurrence: None)
  Receive Date: 20110325
  Receipt Date: 20110228
  Transmission Date: 20110831
  Serious: Yes (Hospitalization)
  Sender: FDA-Public Use
  Company Number: US-BAYER-201031823NA

PATIENT
  Sex: Female
  Weight: 120.18 kg

DRUGS (9)
  1. HISTUSSIN HC [Concomitant]
     Dosage: UNK
     Route: 048
     Dates: start: 20070125
  2. FLEXERIL [Concomitant]
     Dosage: 10 MG, TID
     Route: 048
     Dates: start: 20070213
  3. YASMIN [Suspect]
     Indication: CONTRACEPTION
     Dosage: UNK
     Route: 048
     Dates: start: 20061202, end: 20070301
  4. AMOXICILLIN [Concomitant]
     Dosage: 500 MG, TID
     Route: 048
     Dates: start: 20070125
  5. TOPAMAX [Concomitant]
     Indication: MIGRAINE
     Dosage: 150 MG, BID
     Route: 048
     Dates: start: 20060410, end: 20070313
  6. ULTRACET [Concomitant]
     Indication: PELVIC PAIN
     Route: 048
  7. PERIACTIN [Concomitant]
     Dosage: 4 MG, TID
     Route: 048
  8. OXYCODONE HCL AND ACETAMINOPHEN [Concomitant]
     Dosage: UNK
     Route: 048
     Dates: start: 20061202
  9. BUTORPHANOL [Concomitant]
     Dosage: UNK
     Route: 048
     Dates: start: 20060216

REACTIONS (3)
  - ANXIETY [None]
  - DEEP VEIN THROMBOSIS [None]
  - DEPRESSION [None]
